FAERS Safety Report 17070705 (Version 1)
Quarter: 2019Q4

REPORT INFORMATION
  Report Type: Spontaneous
  Country: US (occurrence: US)
  Receive Date: 20191125
  Receipt Date: 20191125
  Transmission Date: 20200122
  Serious: Yes (Hospitalization)
  Sender: FDA-Public Use
  Company Number: US-PFIZER INC-2017370807

PATIENT
  Age: 77 Year
  Sex: Male
  Weight: 115.2 kg

DRUGS (2)
  1. TIKOSYN [Suspect]
     Active Substance: DOFETILIDE
     Indication: ATRIAL FIBRILLATION
     Dosage: 0.5 MG, 2X/DAY ((0.5MG) TWICE A DAY BY MOUTH AT 1130 IN THE MORNING AND 1130 AT NIGHT)
     Route: 048
  2. AMIODARONE HCL [Suspect]
     Active Substance: AMIODARONE HYDROCHLORIDE
     Dosage: UNK

REACTIONS (6)
  - Dyspnoea [Unknown]
  - Product prescribing error [Unknown]
  - Visual impairment [Unknown]
  - Incorrect dose administered [Unknown]
  - Chest pain [Unknown]
  - Feeling abnormal [Unknown]
